FAERS Safety Report 22971725 (Version 2)
Quarter: 2023Q4

REPORT INFORMATION
  Report Type: Spontaneous
  Country: US (occurrence: US)
  Receive Date: 20230922
  Receipt Date: 20231020
  Transmission Date: 20240110
  Serious: No
  Sender: FDA-Public Use
  Company Number: US-SANOFI-01763677

PATIENT
  Age: 69 Year
  Sex: Female

DRUGS (1)
  1. MULTAQ [Suspect]
     Active Substance: DRONEDARONE
     Indication: Atrial fibrillation
     Dosage: 400 MG, BID (400 MG BID AND DRUG TREATMENT DURATION:^ONLY TOOK 10 OR SO)
     Route: 065

REACTIONS (2)
  - Flushing [Unknown]
  - Erythema [Recovered/Resolved]
